FAERS Safety Report 9322882 (Version 1)
Quarter: 2013Q2

REPORT INFORMATION
  Report Type: Report from Study
  Country: TH (occurrence: TH)
  Receive Date: 20130602
  Receipt Date: 20130602
  Transmission Date: 20140414
  Serious: Yes (Death)
  Sender: FDA-Public Use
  Company Number: PHHY2013TH054984

PATIENT
  Age: 65 Year
  Sex: Male

DRUGS (2)
  1. ZOMETA [Suspect]
     Indication: RENAL NEOPLASM
     Dosage: 4 MG/TIME/MONTH
     Route: 041
  2. SUTENT [Suspect]
     Dosage: UNK

REACTIONS (2)
  - Sepsis [Fatal]
  - Condition aggravated [Unknown]
